FAERS Safety Report 11516936 (Version 1)
Quarter: 2015Q3

REPORT INFORMATION
  Report Type: Spontaneous
  Country: BG (occurrence: BG)
  Receive Date: 20150917
  Receipt Date: 20150917
  Transmission Date: 20151125
  Serious: Yes (Death, Life-Threatening, Hospitalization)
  Sender: FDA-Public Use
  Company Number: BG-SA-2015SA113516

PATIENT
  Age: 51 Year
  Sex: Male
  Weight: 77 kg

DRUGS (17)
  1. ZALTRAP [Suspect]
     Active Substance: ZIV-AFLIBERCEPT
     Indication: COLORECTAL CANCER METASTATIC
     Route: 042
     Dates: start: 20150713, end: 20150713
  2. IRINOTECAN [Concomitant]
     Active Substance: IRINOTECAN
  3. AMLODIPINE [Concomitant]
     Active Substance: AMLODIPINE BESYLATE
     Route: 065
  4. FOLINIC ACID [Concomitant]
     Active Substance: LEUCOVORIN
  5. ZALTRAP [Suspect]
     Active Substance: ZIV-AFLIBERCEPT
     Indication: COLORECTAL CANCER METASTATIC
     Route: 042
     Dates: start: 20150713, end: 20150713
  6. PRADAXA [Concomitant]
     Active Substance: DABIGATRAN ETEXILATE MESYLATE
     Dosage: 2X1 TB
     Route: 065
  7. DEGAN [Concomitant]
     Active Substance: METOCLOPRAMIDE HYDROCHLORIDE
  8. 5 FU [Concomitant]
     Active Substance: FLUOROURACIL
  9. ZOFRAN [Concomitant]
     Active Substance: ONDANSETRON HYDROCHLORIDE
  10. SODIUM CHLORIDE. [Concomitant]
     Active Substance: SODIUM CHLORIDE
  11. GLUCOSE [Concomitant]
     Active Substance: DEXTROSE
  12. DEXAMETHASONE. [Concomitant]
     Active Substance: DEXAMETHASONE
  13. EROLIN [Concomitant]
  14. ZALTRAP [Suspect]
     Active Substance: ZIV-AFLIBERCEPT
     Indication: COLORECTAL CANCER METASTATIC
     Route: 065
  15. ATROPIN [Concomitant]
     Active Substance: ATROPINE
  16. DIGOXIN. [Concomitant]
     Active Substance: DIGOXIN
     Dosage: HALF TABLET IN THE MORNING
     Route: 065
  17. BETALOC ZOK [Concomitant]
     Active Substance: METOPROLOL SUCCINATE
     Dosage: 1+1/2 TAB
     Route: 065

REACTIONS (10)
  - Motor dysfunction [Fatal]
  - Cerebral haemorrhage [Fatal]
  - Headache [Fatal]
  - Incoherent [Fatal]
  - Pulmonary oedema [Fatal]
  - Hemiparesis [Fatal]
  - Post procedural complication [Fatal]
  - Dyspnoea [Fatal]
  - Aphasia [Fatal]
  - Circulatory collapse [Fatal]

NARRATIVE: CASE EVENT DATE: 20150720
